FAERS Safety Report 7368985-1 (Version None)
Quarter: 2011Q1

REPORT INFORMATION
  Report Type: 
  Country: None (occurrence: None)
  Receive Date: 20110323
  Receipt Date: 20110311
  Transmission Date: 20110831
  Serious: Yes (Life-Threatening, Hospitalization)
  Sender: FDA-Public Use
  Company Number: FR-KINGPHARMUSA00001-K201100268

PATIENT
  Age: 67 Year
  Sex: Female

DRUGS (9)
  1. IBUPROFEN [Suspect]
     Dosage: 400 MG, SINGLE
     Dates: start: 20101103, end: 20101103
  2. AMLODIPINE [Suspect]
     Indication: HYPERTENSION
     Dosage: 5 MG, QD
     Route: 048
     Dates: start: 20101103, end: 20101103
  3. AMLODIPINE [Suspect]
     Dosage: 5 MG, QD
     Route: 048
     Dates: start: 20101105, end: 20101109
  4. IBUPROFEN [Suspect]
     Indication: SPINAL OSTEOARTHRITIS
     Dosage: UNK
     Route: 048
     Dates: end: 20101102
  5. ANTITHROMBOTIC AGENTS [Concomitant]
  6. ALTACE [Suspect]
     Dosage: 2.5 MG, BID
     Route: 048
     Dates: start: 20100923, end: 20101102
  7. ALTACE [Suspect]
     Dosage: 2.5 MG, BID
     Route: 048
     Dates: start: 20101105, end: 20101109
  8. CORDAREX [Suspect]
     Indication: ATRIAL FIBRILLATION
     Dosage: 600 MG, QD
     Route: 048
     Dates: start: 20101103, end: 20101109
  9. DICLOFENAC [Suspect]
     Indication: SPINAL OSTEOARTHRITIS
     Dosage: UNK
     Route: 048
     Dates: end: 20101102

REACTIONS (4)
  - BLOOD UREA INCREASED [None]
  - TUBULOINTERSTITIAL NEPHRITIS [None]
  - BLOOD CREATININE INCREASED [None]
  - RENAL FAILURE ACUTE [None]
